FAERS Safety Report 7245685-X (Version None)
Quarter: 2011Q1

REPORT INFORMATION
  Report Type: 
  Country: None (occurrence: None)
  Receive Date: 20110126
  Receipt Date: 20110118
  Transmission Date: 20110831
  Serious: Yes (Other)
  Sender: FDA-Public Use
  Company Number: CA-JNJFOC-20100603986

PATIENT
  Sex: Female
  Weight: 84 kg

DRUGS (6)
  1. REMICADE [Suspect]
     Indication: RHEUMATOID ARTHRITIS
     Route: 042
  2. PREDNISONE [Concomitant]
     Indication: PREMEDICATION
     Dosage: 50 MG DAY FOR 1 WEEK PRIOR TO INFUSION AND DAY OF INFUSION AND 50 MG DAILY FOR 7 DAYS POST-INFUSION.
     Route: 048
  3. BENADRYL [Concomitant]
     Dosage: PRN
     Route: 048
  4. TYLENOL-500 [Concomitant]
     Dosage: PRN
     Route: 048
  5. REMICADE [Suspect]
     Route: 042
  6. AERIUS [Concomitant]
     Dosage: DAILY X7 DAYS

REACTIONS (7)
  - TONGUE DISORDER [None]
  - MUSCULOSKELETAL STIFFNESS [None]
  - CHEST DISCOMFORT [None]
  - PAIN IN EXTREMITY [None]
  - NASAL CONGESTION [None]
  - RESPIRATORY TRACT CONGESTION [None]
  - INFUSION RELATED REACTION [None]
